FAERS Safety Report 25444176 (Version 2)
Quarter: 2025Q4

REPORT INFORMATION
  Report Type: Spontaneous
  Country: US (occurrence: None)
  Receive Date: 20250617
  Receipt Date: 20251027
  Transmission Date: 20260118
  Serious: No
  Sender: UCB
  Company Number: US-UCBSA-2025020169

PATIENT
  Age: 51 Year
  Weight: 99.773 kg

DRUGS (1)
  1. BIMZELX [Suspect]
     Active Substance: BIMEKIZUMAB-BKZX
     Indication: Hidradenitis
     Dosage: 320 MILLIGRAM, EV 2 WEEKS(QOW), FOR WEEKS 4-16 THEN EVERY 4 WEEKS

REACTIONS (4)
  - Abdominal discomfort [Unknown]
  - Hidradenitis [Unknown]
  - Abdominal pain upper [Unknown]
  - Rash [Unknown]
